FAERS Safety Report 5669543-7 (Version None)
Quarter: 2008Q1

REPORT INFORMATION
  Report Type: 
  Country: None (occurrence: None)
  Receive Date: 20080317
  Receipt Date: 20080304
  Transmission Date: 20080703
  Serious: Yes (Hospitalization, Disabling)
  Sender: FDA-Public Use
  Company Number: US-JNJFOC-20071102405

PATIENT
  Sex: Female
  Weight: 69.8 kg

DRUGS (5)
  1. ORTHO EVRA [Suspect]
     Indication: DRUG USE FOR UNKNOWN INDICATION
     Route: 062
     Dates: start: 20040401, end: 20050101
  2. GLUCOPHAGE [Concomitant]
  3. PRINIVIL [Concomitant]
  4. AMITRIPTYLINE HCL [Concomitant]
  5. MOTRIN [Concomitant]
     Indication: PAIN

REACTIONS (2)
  - ARTERIAL THROMBOSIS LIMB [None]
  - LEG AMPUTATION [None]
